FAERS Safety Report 19060697 (Version 7)
Quarter: 2022Q1

REPORT INFORMATION
  Report Type: Spontaneous
  Country: US (occurrence: US)
  Receive Date: 20210326
  Receipt Date: 20220119
  Transmission Date: 20220423
  Serious: No
  Sender: FDA-Public Use
  Company Number: US-SA-SAC20210324001473

PATIENT
  Age: 45 Year
  Sex: Female

DRUGS (3)
  1. AUBAGIO [Suspect]
     Active Substance: TERIFLUNOMIDE
     Indication: Multiple sclerosis
     Dosage: 7 MG
     Route: 048
     Dates: start: 20200903
  2. AUBAGIO [Suspect]
     Active Substance: TERIFLUNOMIDE
     Indication: Paraesthesia
     Dosage: 7 MG
     Route: 048
     Dates: start: 20200914
  3. AUBAGIO [Suspect]
     Active Substance: TERIFLUNOMIDE
     Dosage: 7 MG
     Route: 048

REACTIONS (6)
  - Somnolence [Unknown]
  - Blood pressure increased [Not Recovered/Not Resolved]
  - Product dose omission in error [Unknown]
  - Product use in unapproved indication [Unknown]
  - Product dose omission issue [Unknown]
  - Memory impairment [Unknown]
